FAERS Safety Report 15660684 (Version 2)
Quarter: 2019Q1

REPORT INFORMATION
  Report Type: Spontaneous
  Country: US (occurrence: US)
  Receive Date: 20181127
  Receipt Date: 20190321
  Transmission Date: 20190417
  Serious: Yes (Hospitalization)
  Sender: FDA-Public Use
  Company Number: US-PFIZER INC-2018456490

PATIENT
  Age: 84 Year
  Sex: Female
  Weight: 64 kg

DRUGS (2)
  1. FLECTOR [Suspect]
     Active Substance: DICLOFENAC EPOLAMINE
     Indication: ARTHRALGIA
     Dosage: UNK
     Dates: start: 2018
  2. FLECTOR [Suspect]
     Active Substance: DICLOFENAC EPOLAMINE
     Dosage: UNK

REACTIONS (7)
  - Weight decreased [Unknown]
  - Arthritis infective [Not Recovered/Not Resolved]
  - Haemoglobin decreased [Unknown]
  - Renal failure [Unknown]
  - Intentional product misuse [Unknown]
  - Heart rate increased [Recovered/Resolved]
  - Drug ineffective for unapproved indication [Unknown]

NARRATIVE: CASE EVENT DATE: 2018
